FAERS Safety Report 25835148 (Version 3)
Quarter: 2025Q4

REPORT INFORMATION
  Report Type: Spontaneous
  Country: US (occurrence: US)
  Receive Date: 20250923
  Receipt Date: 20251217
  Transmission Date: 20260117
  Serious: Yes (Hospitalization, Other)
  Sender: SUNOVION
  Company Number: US-SMPA-2025SPA011826

PATIENT
  Age: 86 Year
  Sex: Male
  Weight: 74.83 kg

DRUGS (4)
  1. GEMTESA [Suspect]
     Active Substance: VIBEGRON
     Indication: Hypertonic bladder
     Dosage: 75 MG, QD
     Route: 048
     Dates: start: 2023
  2. ASPIRIN [Concomitant]
     Active Substance: ASPIRIN
     Indication: Pain
     Dosage: UNK
  3. ALEVE [Concomitant]
     Active Substance: NAPROXEN SODIUM
     Indication: Pain
     Dosage: UNK
  4. VITAMINS [Concomitant]
     Active Substance: VITAMINS
     Dosage: UNK

REACTIONS (4)
  - Tremor [Unknown]
  - Urinary tract infection [Recovered/Resolved]
  - Frustration tolerance decreased [Unknown]
  - Therapeutic product effect incomplete [Unknown]

NARRATIVE: CASE EVENT DATE: 20250801
